FAERS Safety Report 12324093 (Version 3)
Quarter: 2016Q2

REPORT INFORMATION
  Report Type: Spontaneous
  Country: JP (occurrence: JP)
  Receive Date: 20160502
  Receipt Date: 20160603
  Transmission Date: 20160815
  Serious: Yes (Hospitalization, Other)
  Sender: FDA-Public Use
  Company Number: JP-BAUSCH-BL-2016-010226

PATIENT
  Age: 79 Year
  Sex: Female

DRUGS (4)
  1. LAXOBERON [Suspect]
     Active Substance: SODIUM PICOSULFATE
     Indication: BOWEL PREPARATION
     Route: 065
  2. MAGCOROL [Suspect]
     Active Substance: MAGNESIUM CITRATE
     Indication: BOWEL PREPARATION
     Route: 065
  3. PURSENNID [Suspect]
     Active Substance: SENNOSIDES A AND B
     Indication: BOWEL PREPARATION
     Route: 048
  4. MOVIPREP [Suspect]
     Active Substance: ASCORBIC ACID\POLYETHYLENE GLYCOL 3350\POTASSIUM CHLORIDE\SODIUM ASCORBATE\SODIUM CHLORIDE\SODIUM SULFATE
     Indication: BOWEL PREPARATION
     Route: 048
     Dates: start: 20160418, end: 20160418

REACTIONS (1)
  - Hyponatraemia [Recovered/Resolved]

NARRATIVE: CASE EVENT DATE: 20160418
